FAERS Safety Report 25424557 (Version 2)
Quarter: 2025Q3

REPORT INFORMATION
  Report Type: Spontaneous
  Country: US (occurrence: US)
  Receive Date: 20250611
  Receipt Date: 20250714
  Transmission Date: 20251021
  Serious: No
  Sender: SANOFI AVENTIS
  Company Number: US-SA-2025SA143968

PATIENT
  Age: 67 Year
  Sex: Female

DRUGS (3)
  1. KEVZARA [Suspect]
     Active Substance: SARILUMAB
     Indication: Rheumatoid arthritis
     Dosage: 200MG, QOW
     Route: 058
     Dates: start: 202505
  2. RINVOQ [Concomitant]
     Active Substance: UPADACITINIB
  3. ENBREL [Concomitant]
     Active Substance: ETANERCEPT

REACTIONS (10)
  - Neck pain [Recovering/Resolving]
  - Pain in jaw [Recovering/Resolving]
  - Chest pain [Recovering/Resolving]
  - Pain in extremity [Recovering/Resolving]
  - Joint swelling [Unknown]
  - Condition aggravated [Unknown]
  - Arthralgia [Unknown]
  - Mental disorder [Unknown]
  - Drug hypersensitivity [Unknown]
  - Drug ineffective [Unknown]

NARRATIVE: CASE EVENT DATE: 20250101
